FAERS Safety Report 15624758 (Version 1)
Quarter: 2018Q4

REPORT INFORMATION
  Report Type: Spontaneous
  Country: AU (occurrence: AU)
  Receive Date: 20181116
  Receipt Date: 20181116
  Transmission Date: 20190205
  Serious: Yes (Other)
  Sender: FDA-Public Use
  Company Number: PHHY2018AU150001

PATIENT
  Age: 16 Year
  Sex: Male

DRUGS (8)
  1. CLOZAPINE. [Suspect]
     Active Substance: CLOZAPINE
     Indication: PRODUCT USED FOR UNKNOWN INDICATION
     Dosage: UNK
     Route: 048
     Dates: start: 201101
  2. OLANZAPINE. [Suspect]
     Active Substance: OLANZAPINE
     Dosage: 30 MG (10 MG AM,20 MG PM)
     Route: 048
     Dates: start: 2018
  3. ATENOLOL. [Concomitant]
     Active Substance: ATENOLOL
     Indication: PRODUCT USED FOR UNKNOWN INDICATION
     Dosage: 50 MG, BID
     Route: 048
  4. ATORVASTATIN [Concomitant]
     Active Substance: ATORVASTATIN
     Indication: PRODUCT USED FOR UNKNOWN INDICATION
     Dosage: 40 MG, UNK (NOCTE)
     Route: 048
  5. ZUCLOPENTHIXOL [Suspect]
     Active Substance: ZUCLOPENTHIXOL
     Indication: PRODUCT USED FOR UNKNOWN INDICATION
     Dosage: 400 MG, UNK (PM)
     Route: 065
  6. OLANZAPINE. [Suspect]
     Active Substance: OLANZAPINE
     Indication: PRODUCT USED FOR UNKNOWN INDICATION
     Dosage: UNK
     Route: 048
  7. METFORMIN [Concomitant]
     Active Substance: METFORMIN HYDROCHLORIDE
     Indication: PRODUCT USED FOR UNKNOWN INDICATION
     Dosage: 500 MG, BID
     Route: 048
  8. ESCITALOPRAM [Concomitant]
     Active Substance: ESCITALOPRAM OXALATE
     Indication: PRODUCT USED FOR UNKNOWN INDICATION
     Dosage: 20 MG, UNK (MANE)
     Route: 048

REACTIONS (8)
  - Psychotic disorder [Not Recovered/Not Resolved]
  - Metabolic syndrome [Unknown]
  - Influenza like illness [Unknown]
  - Product use issue [Unknown]
  - Leukocytosis [Unknown]
  - Myocarditis [Unknown]
  - Hypothermia [Unknown]
  - General physical condition abnormal [Unknown]

NARRATIVE: CASE EVENT DATE: 2011
